FAERS Safety Report 8959838 (Version 1)
Quarter: 2012Q4

REPORT INFORMATION
  Report Type: 
  Country: US (occurrence: US)
  Receive Date: 20121212
  Receipt Date: 20121212
  Transmission Date: 20130627
  Serious: Yes (Hospitalization)
  Sender: FDA-Public Use
  Company Number: US-AMGEN-USASP2012078190

PATIENT
  Age: 56 Year
  Sex: Male

DRUGS (2)
  1. ENBREL [Suspect]
     Indication: ANKYLOSING SPONDYLITIS
     Dosage: 50 mg, weekly
     Dates: start: 20050206, end: 20121106
  2. COUMADIN                           /00014802/ [Concomitant]
     Dosage: UNK

REACTIONS (3)
  - Pulmonary embolism [Not Recovered/Not Resolved]
  - Osteoarthritis [Recovered/Resolved]
  - Coagulation time prolonged [Not Recovered/Not Resolved]
